FAERS Safety Report 13639939 (Version 1)
Quarter: 2017Q2

REPORT INFORMATION
  Report Type: Spontaneous
  Country: US (occurrence: US)
  Receive Date: 20170609
  Receipt Date: 20170609
  Transmission Date: 20170830
  Serious: No
  Sender: FDA-Public Use
  Company Number: US-ROCHE-1413808

PATIENT
  Sex: Female

DRUGS (3)
  1. KLONOPIN [Suspect]
     Active Substance: CLONAZEPAM
     Indication: SEDATION
  2. KLONOPIN [Suspect]
     Active Substance: CLONAZEPAM
     Indication: TINNITUS
     Route: 065
     Dates: start: 201401
  3. ACTONEL [Concomitant]
     Active Substance: RISEDRONATE SODIUM

REACTIONS (6)
  - Bone disorder [Unknown]
  - Somnolence [Not Recovered/Not Resolved]
  - Drug dose omission [Unknown]
  - Ovarian cyst [Not Recovered/Not Resolved]
  - Drug ineffective [Not Recovered/Not Resolved]
  - Muscle twitching [Not Recovered/Not Resolved]
